FAERS Safety Report 21747662 (Version 1)
Quarter: 2022Q4

REPORT INFORMATION
  Report Type: Spontaneous
  Country: PL (occurrence: PL)
  Receive Date: 20221219
  Receipt Date: 20221219
  Transmission Date: 20230112
  Serious: Yes (Other)
  Sender: FDA-Public Use
  Company Number: PL-ABBVIE-4238781

PATIENT
  Age: 71 Year
  Sex: Female

DRUGS (4)
  1. VENETOCLAX [Suspect]
     Active Substance: VENETOCLAX
     Indication: Acute myeloid leukaemia
     Dosage: 2 CYCLE
     Route: 048
     Dates: start: 20221112, end: 20221117
  2. VENETOCLAX [Suspect]
     Active Substance: VENETOCLAX
     Indication: Acute myeloid leukaemia
     Dosage: 1 CYCLE?LAST ADMIN DATE: --2022?THE ONSET DATE FOR EVENTS SUSPECTED INFLAMMATORY CHANGES IN CHEST...
     Route: 048
     Dates: start: 20221015
  3. AZACITIDINE [Concomitant]
     Active Substance: AZACITIDINE
     Indication: Acute myeloid leukaemia
     Dosage: 1 CYCLE
     Dates: start: 20221112, end: 20221117
  4. AZACITIDINE [Concomitant]
     Active Substance: AZACITIDINE
     Indication: Acute myeloid leukaemia
     Dosage: 1 CYCLE
     Dates: start: 20221015

REACTIONS (16)
  - Disseminated intravascular coagulation [Unknown]
  - Pyrexia [Unknown]
  - Inflammation [Unknown]
  - Gamma-glutamyltransferase increased [Unknown]
  - Atrial fibrillation [Unknown]
  - Liver abscess [Unknown]
  - Abdominal pain upper [Unknown]
  - Tri-iodothyronine free decreased [Unknown]
  - Bilirubin conjugated increased [Unknown]
  - Acinetobacter infection [Unknown]
  - Blood thyroid stimulating hormone decreased [Unknown]
  - Inflammatory marker increased [Unknown]
  - Enterococcal infection [Unknown]
  - Blood alkaline phosphatase increased [Unknown]
  - Electrolyte imbalance [Unknown]
  - Hepatic lesion [Unknown]

NARRATIVE: CASE EVENT DATE: 20221101
